FAERS Safety Report 9514969 (Version 2)
Quarter: 2014Q1

REPORT INFORMATION
  Report Type: Spontaneous
  Country: US (occurrence: None)
  Receive Date: 20130305
  Receipt Date: 20140306
  Transmission Date: 20141002
  Serious: Yes (Hospitalization)
  Sender: FDA-Public Use
  Company Number: 163-21880-12122236

PATIENT
  Age: 65 Year
  Sex: Female
  Weight: 73.03 kg

DRUGS (5)
  1. REVLIMID (LENALIDOMIDE) (25 MILLIGRAM, CAPSULES [Suspect]
     Indication: PLASMA CELL MYELOMA
     Dosage: 25 MG, 21 IN 21 D, PO
     Route: 048
     Dates: start: 20121011, end: 201301
  2. LOSARTAN (LOSARTAN0) [Concomitant]
  3. CYCLOBENZAPRINE (CYLCOBENZAPRINE) [Concomitant]
  4. ALBUTEROL (SALBUTAMOL) [Concomitant]
  5. TRAMADOL (TRAMADOL) [Concomitant]

REACTIONS (1)
  - Pneumonia [None]
